FAERS Safety Report 8419131-4 (Version None)
Quarter: 2012Q2

REPORT INFORMATION
  Report Type: 
  Country: None (occurrence: None)
  Receive Date: 20120607
  Receipt Date: 20120605
  Transmission Date: 20120825
  Serious: Yes (Life-Threatening, Hospitalization)
  Sender: FDA-Public Use
  Company Number: PHHY2012JO048284

PATIENT
  Age: 16 Year
  Sex: Female

DRUGS (3)
  1. TEGRETOL [Suspect]
     Indication: SUICIDE ATTEMPT
     Dosage: 40 DF, UNK
     Route: 048
  2. SEROQUEL [Suspect]
     Indication: SUICIDE ATTEMPT
     Dosage: 6 DF, UNK
     Route: 048
  3. DOLORAZ [Suspect]
     Indication: SUICIDE ATTEMPT
     Dosage: 6 DF, UNK
     Route: 048

REACTIONS (3)
  - SOMNOLENCE [None]
  - DISORIENTATION [None]
  - COMA [None]
